FAERS Safety Report 5575653-5 (Version None)
Quarter: 2007Q4

REPORT INFORMATION
  Report Type: 
  Country: None (occurrence: None)
  Receive Date: 20071227
  Receipt Date: 20071217
  Transmission Date: 20080405
  Serious: Yes (Hospitalization, Other)
  Sender: FDA-Public Use
  Company Number: US-ABBOTT-07P-163-0431150-00

PATIENT
  Sex: Female
  Weight: 61.29 kg

DRUGS (4)
  1. HUMIRA [Suspect]
     Indication: CROHN'S DISEASE
     Dosage: 160MG LOADING DOSE
     Route: 058
     Dates: start: 20071121, end: 20071205
  2. HUMIRA [Suspect]
     Route: 058
     Dates: start: 20071205, end: 20071219
  3. HUMIRA [Suspect]
     Route: 058
     Dates: start: 20071219
  4. PREDNISONE [Concomitant]
     Indication: DRUG USE FOR UNKNOWN INDICATION
     Dates: end: 20071126

REACTIONS (9)
  - CROHN'S DISEASE [None]
  - DIARRHOEA [None]
  - HAEMOGLOBIN DECREASED [None]
  - INJECTION SITE DISCOLOURATION [None]
  - INJECTION SITE IRRITATION [None]
  - INJECTION SITE PRURITUS [None]
  - LARGE INTESTINAL HAEMORRHAGE [None]
  - PAIN [None]
  - RECTAL HAEMORRHAGE [None]
